FAERS Safety Report 15868914 (Version 6)
Quarter: 2019Q4

REPORT INFORMATION
  Report Type: Spontaneous
  Country: JP (occurrence: JP)
  Receive Date: 20190125
  Receipt Date: 20191018
  Transmission Date: 20200122
  Serious: Yes (Death, Life-Threatening, Hospitalization, Other)
  Sender: FDA-Public Use
  Company Number: JP-GLAXOSMITHKLINE-JP2019JPN011493

PATIENT
  Age: 61 Year
  Sex: Female
  Weight: 43 kg

DRUGS (4)
  1. THEO-DUR [Concomitant]
     Active Substance: THEOPHYLLINE ANHYDROUS
     Indication: ASTHMA
     Dosage: 400 MG, 1D
     Dates: start: 201109
  2. SPIRIVA RESPIMAT [Concomitant]
     Active Substance: TIOTROPIUM BROMIDE
     Indication: ASTHMA
     Dosage: 5 ?G, QD
     Dates: start: 201508
  3. SYMBICORT TURBUHALER (BUDESONIDE + FORMOTEROL FUMARATE DIHYDRATE) [Concomitant]
     Indication: ASTHMA
     Dosage: 6 DF, 1D
     Dates: start: 201508
  4. MEPOLIZUMAB [Suspect]
     Active Substance: MEPOLIZUMAB
     Indication: ASTHMA
     Dosage: 100 MG, UNK
     Route: 058
     Dates: start: 20161017, end: 20180906

REACTIONS (11)
  - Haematochezia [Recovering/Resolving]
  - Device related infection [Recovered/Resolved]
  - Rectal cancer stage IV [Fatal]
  - Weight decreased [Unknown]
  - Fall [Recovered/Resolved]
  - Metastases to liver [Fatal]
  - Conjunctivitis allergic [Unknown]
  - Ascites [Not Recovered/Not Resolved]
  - Somnolence [Not Recovered/Not Resolved]
  - Hyperammonaemia [Not Recovered/Not Resolved]
  - Asthenia [Unknown]

NARRATIVE: CASE EVENT DATE: 20180801
